FAERS Safety Report 7518272-3 (Version None)
Quarter: 2011Q2

REPORT INFORMATION
  Report Type: 
  Country: None (occurrence: None)
  Receive Date: 20110601
  Receipt Date: 20110601
  Transmission Date: 20111010
  Serious: Yes (Other)
  Sender: FDA-Public Use
  Company Number: None

PATIENT
  Sex: Male
  Weight: 117.9352 kg

DRUGS (1)
  1. NORTRIPTYLINE HCL [Suspect]
     Indication: ARTHRITIS
     Dosage: 50 MG 1TIME A DAY
     Dates: start: 20110120, end: 20110401

REACTIONS (8)
  - IMPULSIVE BEHAVIOUR [None]
  - AGITATION [None]
  - MOOD SWINGS [None]
  - SOMNOLENCE [None]
  - ABNORMAL BEHAVIOUR [None]
  - CONFUSIONAL STATE [None]
  - DIZZINESS [None]
  - CONVULSION [None]
